FAERS Safety Report 20590908 (Version 1)
Quarter: 2022Q1

REPORT INFORMATION
  Report Type: Spontaneous
  Country: US (occurrence: US)
  Receive Date: 20220314
  Receipt Date: 20220314
  Transmission Date: 20220424
  Serious: No
  Sender: FDA-Public Use
  Company Number: US-SA-SAC20220310000275

PATIENT
  Sex: Female

DRUGS (15)
  1. DUPIXENT [Suspect]
     Active Substance: DUPILUMAB
     Indication: Rhinitis allergic
     Dosage: 300MG QOW
     Route: 058
  2. AMOXICILLIN [Concomitant]
     Active Substance: AMOXICILLIN
     Dosage: 875-125M,
  3. AMMONIUM LACTATE [Concomitant]
     Active Substance: AMMONIUM LACTATE
  4. CLOBETASOL [Concomitant]
     Active Substance: CLOBETASOL
  5. DILTIAZEM [Concomitant]
     Active Substance: DILTIAZEM
     Dosage: 120MG
  6. EZETIMIBE [Concomitant]
     Active Substance: EZETIMIBE
     Dosage: 10MG
  7. LANTUS [Concomitant]
     Active Substance: INSULIN GLARGINE
  8. TRIAMCINOLONE [Concomitant]
     Active Substance: TRIAMCINOLONE
  9. LISINOPRIL [Concomitant]
     Active Substance: LISINOPRIL
  10. PREMARIN [Concomitant]
     Active Substance: ESTROGENS, CONJUGATED
     Dosage: 0.3MG
  11. TACROLIMUS [Concomitant]
     Active Substance: TACROLIMUS
  12. VENTOLIN HFA [Concomitant]
     Active Substance: ALBUTEROL SULFATE
  13. CLINDAMYCIN [Concomitant]
     Active Substance: CLINDAMYCIN
  14. HYDROCHLOROTHIAZIDE [Concomitant]
     Active Substance: HYDROCHLOROTHIAZIDE
     Dosage: 12.5 MG
  15. INSULIN NOS [Concomitant]
     Active Substance: INSULIN NOS

REACTIONS (3)
  - COVID-19 [Recovered/Resolved]
  - Product use in unapproved indication [Unknown]
  - Inappropriate schedule of product administration [Unknown]
